FAERS Safety Report 14578789 (Version 2)
Quarter: 2018Q1

REPORT INFORMATION
  Report Type: Report from Study
  Country: None (occurrence: PT)
  Receive Date: 20180227
  Receipt Date: 20180302
  Transmission Date: 20180509
  Serious: Yes (Other)
  Sender: FDA-Public Use
  Company Number: PT-ABBVIE-18K-130-2267293-00

PATIENT
  Age: 80 Year
  Sex: Female

DRUGS (8)
  1. DUODOPA [Suspect]
     Active Substance: CARBIDOPA\LEVODOPA
     Dosage: 20 MG LEVODOPA + 5 MG CARBIDOPA?MORNING DOSE 8ML; CONT DOSE 3.7ML/H
     Route: 050
     Dates: start: 20150311, end: 20151104
  2. DUODOPA [Suspect]
     Active Substance: CARBIDOPA\LEVODOPA
     Dosage: 20 MG LEVODOPA + 5 MG CARBIDOPA?CONT DOSE 1.4ML/H;
     Route: 050
     Dates: start: 20171221, end: 20180217
  3. DUODOPA [Suspect]
     Active Substance: CARBIDOPA\LEVODOPA
     Dosage: 20 MG LEVODOPA + 5 MG CARBIDOPA
     Route: 050
     Dates: start: 20160804, end: 20161116
  4. DUODOPA [Suspect]
     Active Substance: CARBIDOPA\LEVODOPA
     Dosage: 20 MG LEVODOPA + 5 MG CARBIDOPA?MORNING DOSE 8ML; CONT DOSE 5.1ML/H; EXTRA DOSE 1ML/DAY
     Route: 050
     Dates: start: 20161117, end: 20170619
  5. DUODOPA [Suspect]
     Active Substance: CARBIDOPA\LEVODOPA
     Dosage: 20 MG LEVODOPA + 5 MG CARBIDOPA?MORNING DOSE 8ML; CONT DOSE 1.4ML/H; EXTRA DOSE 1ML
     Route: 050
     Dates: start: 20170705, end: 20171218
  6. DUODOPA [Suspect]
     Active Substance: CARBIDOPA\LEVODOPA
     Indication: PARKINSON^S DISEASE
     Dosage: 20 MG LEVODOPA + 5 MG CARBIDOPA
     Route: 050
     Dates: start: 20091113
  7. DUODOPA [Suspect]
     Active Substance: CARBIDOPA\LEVODOPA
     Dosage: 20MG LEVODOPA+5MGCARBIDOPA MD8ML;CD:4.6ML/H DURING DAY; ED:1MLADMINISTERED TWICE AT NIGHT
     Route: 050
     Dates: end: 2015
  8. DUODOPA [Suspect]
     Active Substance: CARBIDOPA\LEVODOPA
     Dosage: 20 MG LEVODOPA + 5 MG CARBIDOPA
     Route: 050
     Dates: start: 20160527, end: 2016

REACTIONS (4)
  - Irritability [Recovered/Resolved]
  - Prosopagnosia [Recovered/Resolved]
  - Disorientation [Recovered/Resolved]
  - Device alarm issue [Unknown]

NARRATIVE: CASE EVENT DATE: 20180216
